FAERS Safety Report 7898066-X (Version None)
Quarter: 2011Q4

REPORT INFORMATION
  Report Type: 
  Country: None (occurrence: None)
  Receive Date: 20111103
  Receipt Date: 20111029
  Transmission Date: 20120403
  Serious: Yes (Other)
  Sender: FDA-Public Use
  Company Number: CL-354-2011

PATIENT
  Age: 62 Year
  Sex: Female

DRUGS (1)
  1. FLUCONAZOLE [Suspect]
     Indication: ONYCHOMYCOSIS
     Dosage: 150 MG ONCE

REACTIONS (2)
  - DRUG INTERACTION [None]
  - DRUG ERUPTION [None]
